FAERS Safety Report 5507733-4 (Version None)
Quarter: 2007Q4

REPORT INFORMATION
  Report Type: 
  Country: None (occurrence: None)
  Receive Date: 20071105
  Receipt Date: 20071105
  Transmission Date: 20080405
  Serious: Yes (Other)
  Sender: FDA-Public Use
  Company Number: None

PATIENT
  Age: 39 Year
  Sex: Male
  Weight: 93.441 kg

DRUGS (1)
  1. CYMBALTA [Suspect]
     Indication: DEPRESSION
     Dosage: 1 - 60 MG TABLET 1 PER DAY PO
     Route: 048
     Dates: start: 20070201, end: 20071102

REACTIONS (2)
  - ALCOHOL USE [None]
  - CONDITION AGGRAVATED [None]
